FAERS Safety Report 6696177-8 (Version None)
Quarter: 2010Q2

REPORT INFORMATION
  Report Type: 
  Country: None (occurrence: None)
  Receive Date: 20100426
  Receipt Date: 20100326
  Transmission Date: 20101027
  Serious: No
  Sender: FDA-Public Use
  Company Number: US-BAYER-201013754BCC

PATIENT
  Age: 59 Year
  Sex: Female
  Weight: 77 kg

DRUGS (2)
  1. ALEVE [Suspect]
     Indication: ARTHRALGIA
     Dosage: UNIT DOSE: 220 MG
     Route: 048
     Dates: start: 20100325
  2. SYNTHROID [Concomitant]

REACTIONS (2)
  - DYSGEUSIA [None]
  - THROAT IRRITATION [None]
